FAERS Safety Report 7421146-X (Version None)
Quarter: 2011Q2

REPORT INFORMATION
  Report Type: 
  Country: None (occurrence: None)
  Receive Date: 20110418
  Receipt Date: 20110413
  Transmission Date: 20111010
  Serious: Yes (Hospitalization, Other)
  Sender: FDA-Public Use
  Company Number: ES-ABBOTT-07P-144-0375200-00

PATIENT
  Age: 73 Year
  Sex: Female

DRUGS (13)
  1. HUMIRA [Suspect]
     Indication: RHEUMATOID ARTHRITIS
     Route: 058
     Dates: start: 20050331
  2. DIGOXIN [Concomitant]
     Indication: PRODUCT USED FOR UNKNOWN INDICATION
     Route: 048
  3. HIDROFEROL [Concomitant]
     Indication: OSTEOPOROSIS
     Route: 048
  4. PREOTACT [Concomitant]
     Indication: OSTEOPOROSIS
     Route: 058
  5. AIRTAL [Concomitant]
     Indication: PRODUCT USED FOR UNKNOWN INDICATION
     Route: 048
  6. FUROSEMIDE [Concomitant]
     Indication: MITRAL VALVE INCOMPETENCE
     Route: 048
  7. SINTROM [Concomitant]
     Indication: ATRIAL FIBRILLATION
     Route: 048
  8. MOTIVAN [Concomitant]
     Indication: DEPRESSION
     Route: 048
  9. SEDOTIME [Concomitant]
     Indication: PRODUCT USED FOR UNKNOWN INDICATION
     Route: 048
  10. POTASION [Concomitant]
     Indication: PRODUCT USED FOR UNKNOWN INDICATION
     Route: 048
  11. MONOLITUM [Concomitant]
     Indication: PRODUCT USED FOR UNKNOWN INDICATION
     Route: 048
  12. IDEOS [Concomitant]
     Indication: OSTEOPOROSIS
  13. ZAMENE [Concomitant]
     Indication: RHEUMATOID ARTHRITIS
     Route: 048

REACTIONS (4)
  - MEDICAL DEVICE PAIN [None]
  - MOBILITY DECREASED [None]
  - BONE DISORDER [None]
  - DEVICE DISLOCATION [None]
